FAERS Safety Report 5379722-4 (Version None)
Quarter: 2007Q3

REPORT INFORMATION
  Report Type: 
  Country: None (occurrence: None)
  Receive Date: 20070706
  Receipt Date: 20070628
  Transmission Date: 20080115
  Serious: Yes (Hospitalization)
  Sender: FDA-Public Use
  Company Number: PHHO2007HU08726

PATIENT
  Age: 62 Year
  Sex: Female
  Weight: 74 kg

DRUGS (1)
  1. TAMOXIFEN CITRATE [Suspect]
     Indication: BREAST CANCER
     Dosage: DOUBLE BLIND
     Route: 048
     Dates: start: 20000615, end: 20050615

REACTIONS (5)
  - HYSTERECTOMY [None]
  - LEIOMYOMA [None]
  - SALPINGO-OOPHORECTOMY [None]
  - URINARY INCONTINENCE [None]
  - UTERINE POLYP [None]
